FAERS Safety Report 5026136-2 (Version None)
Quarter: 2006Q2

REPORT INFORMATION
  Report Type: 
  Country: None (occurrence: None)
  Receive Date: 20060612
  Receipt Date: 20060612
  Transmission Date: 20061013
  Serious: No
  Sender: FDA-Public Use
  Company Number: None

PATIENT
  Age: 22 Year
  Sex: Male
  Weight: 79.3795 kg

DRUGS (2)
  1. FLUOXETINE [Suspect]
     Indication: ANXIETY
     Dosage: 20 MG 1X DAILY PO
     Route: 048
     Dates: start: 20040820, end: 20050315
  2. AMBIEN [Concomitant]

REACTIONS (20)
  - ANHEDONIA [None]
  - BRAIN DAMAGE [None]
  - DEPRESSION [None]
  - DISTURBANCE IN SEXUAL AROUSAL [None]
  - EJACULATION DISORDER [None]
  - EMOTIONAL DISORDER [None]
  - ERECTILE DYSFUNCTION [None]
  - FEAR [None]
  - FLAT AFFECT [None]
  - GENITAL DISCHARGE [None]
  - GENITAL DISORDER MALE [None]
  - HYPOAESTHESIA [None]
  - INDIFFERENCE [None]
  - LOSS OF LIBIDO [None]
  - ORGASMIC SENSATION DECREASED [None]
  - PENIS DISORDER [None]
  - POISONING [None]
  - RESTLESS LEGS SYNDROME [None]
  - SEXUAL DYSFUNCTION [None]
  - SPONTANEOUS PENILE ERECTION [None]
